FAERS Safety Report 9720115 (Version 1)
Quarter: 2013Q4

REPORT INFORMATION
  Report Type: Spontaneous
  Country: ES (occurrence: ES)
  Receive Date: 20131128
  Receipt Date: 20131128
  Transmission Date: 20140711
  Serious: Yes (Other)
  Sender: FDA-Public Use
  Company Number: ES-BRISTOL-MYERS SQUIBB COMPANY-19839349

PATIENT
  Age: 42 Year
  Sex: Female

DRUGS (9)
  1. SUSTIVA [Suspect]
     Indication: HIV INFECTION
     Route: 048
     Dates: start: 20110418
  2. AMLODIPINE [Concomitant]
     Indication: DIASTOLIC HYPERTENSION
     Route: 048
  3. OMEPRAZOLE [Concomitant]
     Route: 048
  4. SIMVASTATINE [Concomitant]
     Route: 048
  5. SODIUM BICARBONATE [Concomitant]
  6. LAMIVUDINE [Concomitant]
     Indication: HIV INFECTION
     Route: 048
     Dates: start: 20110418
  7. EUTIROX [Concomitant]
     Indication: HYPOTHYROIDISM
     Route: 048
  8. TARDYFERON [Concomitant]
     Route: 048
  9. VIDEX [Concomitant]
     Indication: HIV INFECTION
     Route: 048
     Dates: start: 20110418

REACTIONS (1)
  - Nephrolithiasis [Unknown]
